FAERS Safety Report 9124338 (Version 1)
Quarter: 2013Q1

REPORT INFORMATION
  Report Type: Spontaneous
  Country: BR (occurrence: BR)
  Receive Date: 20130116
  Receipt Date: 20130116
  Transmission Date: 20140127
  Serious: Yes (Death)
  Sender: FDA-Public Use
  Company Number: PHHY2013BR003772

PATIENT
  Sex: Male

DRUGS (3)
  1. SANDOSTATIN LAR [Suspect]
     Indication: ACROMEGALY
  2. SANDOSTATIN LAR [Suspect]
     Dates: start: 201206
  3. SANDOSTATIN LAR [Suspect]
     Dates: start: 201207

REACTIONS (2)
  - Death [Fatal]
  - Asthenia [Unknown]
